FAERS Safety Report 7343207-6 (Version None)
Quarter: 2011Q1

REPORT INFORMATION
  Report Type: 
  Country: None (occurrence: None)
  Receive Date: 20110310
  Receipt Date: 20110305
  Transmission Date: 20110831
  Serious: Yes (Other)
  Sender: FDA-Public Use
  Company Number: AT-BAYER-2011-008964

PATIENT
  Sex: Male

DRUGS (1)
  1. ULTRAVIST 150 [Suspect]
     Indication: COMPUTERISED TOMOGRAM ABDOMEN
     Dosage: DAILY DOSE 120 ML
     Dates: start: 20110127, end: 20110127

REACTIONS (7)
  - ABDOMINAL PAIN UPPER [None]
  - VOMITING [None]
  - SOMNOLENCE [None]
  - SHOCK [None]
  - NAUSEA [None]
  - DYSPNOEA [None]
  - MUSCLE SPASMS [None]
